FAERS Safety Report 9743720 (Version 2)
Quarter: 2013Q4

REPORT INFORMATION
  Report Type: Spontaneous
  Country: US (occurrence: US)
  Receive Date: 20131210
  Receipt Date: 20131212
  Transmission Date: 20140711
  Serious: No
  Sender: FDA-Public Use
  Company Number: US-TEVA-382537USA

PATIENT
  Age: 25 Year
  Sex: Female
  Weight: 52.66 kg

DRUGS (3)
  1. PARAGARD 380A [Suspect]
     Indication: CONTRACEPTION
     Route: 015
     Dates: start: 20121024
  2. PARAGARD 380A [Suspect]
     Dates: start: 20130207
  3. VITAMINS [Concomitant]

REACTIONS (3)
  - Uterine spasm [Not Recovered/Not Resolved]
  - Pelvic pain [Not Recovered/Not Resolved]
  - Device expulsion [Not Recovered/Not Resolved]
